FAERS Safety Report 21974094 (Version 2)
Quarter: 2023Q1

REPORT INFORMATION
  Report Type: Spontaneous
  Country: DE (occurrence: DE)
  Receive Date: 20230209
  Receipt Date: 20230224
  Transmission Date: 20230417
  Serious: Yes (Other)
  Sender: FDA-Public Use
  Company Number: DE-002147023-NVSC2023DE019234

PATIENT
  Sex: Female

DRUGS (4)
  1. DESLORATADINE [Suspect]
     Active Substance: DESLORATADINE
     Indication: Product used for unknown indication
     Dosage: 1 DOSAGE FORM, QD 1X DAILY AT AFTERNOON BETWEEN 2 AND 3 PM)
     Route: 065
     Dates: start: 2018
  2. DESMOPRESSIN [Suspect]
     Active Substance: DESMOPRESSIN
     Indication: Platelet disorder
     Dosage: UNK
     Route: 065
     Dates: start: 2018
  3. MEFENAMIC ACID [Suspect]
     Active Substance: MEFENAMIC ACID
     Indication: Product used for unknown indication
     Dosage: UNK
     Route: 065
  4. TRANEXAMIC ACID [Suspect]
     Active Substance: TRANEXAMIC ACID
     Indication: Platelet disorder
     Dosage: UNK
     Route: 065
     Dates: start: 2018

REACTIONS (10)
  - Angioedema [Unknown]
  - Muscle spasms [Unknown]
  - Drug intolerance [Unknown]
  - Visual impairment [Unknown]
  - Dyspnoea [Unknown]
  - Syncope [Unknown]
  - Malaise [Unknown]
  - Anaphylactic reaction [Unknown]
  - Respiratory distress [Unknown]
  - Cardiovascular insufficiency [Unknown]

NARRATIVE: CASE EVENT DATE: 20180101
